FAERS Safety Report 8477602-9 (Version None)
Quarter: 2012Q2

REPORT INFORMATION
  Report Type: 
  Country: None (occurrence: None)
  Receive Date: 20120620
  Receipt Date: 20120606
  Transmission Date: 20120825
  Serious: Yes (Other)
  Sender: FDA-Public Use
  Company Number: ACO_30648_2012

PATIENT
  Age: 80 Year
  Sex: Female
  Weight: 68 kg

DRUGS (3)
  1. PROVIGIL [Concomitant]
  2. AMPYRA [Suspect]
     Indication: GAIT DISTURBANCE
     Dosage: 10MG, Q 12 HRS, ORAL
     Route: 048
     Dates: start: 20100816, end: 20101001
  3. AVONEX [Concomitant]

REACTIONS (6)
  - BACTERAEMIA [None]
  - DRUG INEFFECTIVE [None]
  - FALL [None]
  - CONCUSSION [None]
  - SKIN INJURY [None]
  - GANGRENE [None]
